FAERS Safety Report 19783951 (Version 1)
Quarter: 2021Q3

REPORT INFORMATION
  Report Type: Spontaneous
  Country: US (occurrence: US)
  Receive Date: 20210903
  Receipt Date: 20210903
  Transmission Date: 20211014
  Serious: Yes (Hospitalization)
  Sender: FDA-Public Use
  Company Number: US-BECTON DICKINSON-US-BD-21-000119

PATIENT
  Age: 63 Year
  Sex: Male

DRUGS (2)
  1. CHLORAPREP [Suspect]
     Active Substance: CHLORHEXIDINE GLUCONATE\ISOPROPYL ALCOHOL
     Indication: PRODUCT USED FOR UNKNOWN INDICATION
     Dosage: UNK
     Route: 065
  2. REMODULIN [Suspect]
     Active Substance: TREPROSTINIL
     Indication: PULMONARY HYPERTENSION
     Dosage: 0.030 MICROGRAM/KG, INFUSION RATE :46 ML/24HR
     Route: 042
     Dates: start: 20201231

REACTIONS (3)
  - Pruritus [Unknown]
  - Injection site irritation [Unknown]
  - Skin irritation [Unknown]

NARRATIVE: CASE EVENT DATE: 2021
